FAERS Safety Report 4401705-9 (Version None)
Quarter: 2004Q3

REPORT INFORMATION
  Report Type: 
  Country: None (occurrence: None)
  Receive Date: 20040714
  Receipt Date: 20030506
  Transmission Date: 20050211
  Serious: Yes (Hospitalization)
  Sender: FDA-Public Use
  Company Number: 2003019616

PATIENT
  Age: 54 Year
  Sex: Male
  Weight: 204 kg

DRUGS (14)
  1. SILDENAFIL (SILDENAFIL) [Suspect]
     Indication: ERECTILE DYSFUNCTION
     Dosage: 50 MG (AS NEEDE4D), ORAL
     Route: 048
     Dates: start: 20021030, end: 20030426
  2. MULTIVITAMIN [Concomitant]
  3. TRAZODONE HCL [Concomitant]
  4. PAROXETINE HCL [Concomitant]
  5. NALTREXODONE (NALTREXONE) [Concomitant]
  6. METFORMIN HCL [Concomitant]
  7. COCAINE (COCAINE) [Concomitant]
  8. ETHANOL (ETHANOL) [Concomitant]
  9. SILDENAFIL CITRATE (SILDENAFIL CITRATE) [Concomitant]
  10. CAPSAICIN (CAPSAICIN) [Concomitant]
  11. PARACETAMOL (PARACETAMOL) [Concomitant]
  12. RANITIDINE [Concomitant]
  13. CLOBETASOL (CLOBETASOL) [Concomitant]
  14. HYDROXYZINE [Concomitant]

REACTIONS (13)
  - ALCOHOL INTERACTION [None]
  - ALCOHOL USE [None]
  - ANXIETY [None]
  - ASPARTATE AMINOTRANSFERASE INCREASED [None]
  - ATRIAL FIBRILLATION [None]
  - BLOOD CREATINE PHOSPHOKINASE INCREASED [None]
  - BLOOD LACTATE DEHYDROGENASE INCREASED [None]
  - DEPENDENCE [None]
  - DRUG ABUSER [None]
  - DRUG INTERACTION [None]
  - DRUG SCREEN POSITIVE [None]
  - NAUSEA [None]
  - PALPITATIONS [None]
